FAERS Safety Report 23935310 (Version 1)
Quarter: 2024Q2

REPORT INFORMATION
  Report Type: Spontaneous
  Country: US (occurrence: US)
  Receive Date: 20240604
  Receipt Date: 20240604
  Transmission Date: 20240716
  Serious: Yes (Other)
  Sender: FDA-Public Use
  Company Number: US-SANDOZ-SDZ2024US053877

PATIENT
  Sex: Female

DRUGS (2)
  1. GLIMEPIRIDE [Suspect]
     Active Substance: GLIMEPIRIDE
     Indication: Hidradenitis
     Dosage: 2 MG
     Route: 065
  2. METFORMIN [Suspect]
     Active Substance: METFORMIN HYDROCHLORIDE
     Indication: Hidradenitis
     Dosage: 500 MG
     Route: 065

REACTIONS (4)
  - Hidradenitis [Recovering/Resolving]
  - Disease progression [Recovering/Resolving]
  - Gastrointestinal disorder [Recovering/Resolving]
  - Product use in unapproved indication [Unknown]
